FAERS Safety Report 4643489-5 (Version None)
Quarter: 2005Q2

REPORT INFORMATION
  Report Type: 
  Country: None (occurrence: None)
  Receive Date: 20050328
  Receipt Date: 20040715
  Transmission Date: 20051028
  Serious: Yes (Disabling, Other)
  Sender: FDA-Public Use
  Company Number: PHEH2004US07665

PATIENT
  Sex: Female

DRUGS (5)
  1. VIVELLE-DOT [Suspect]
  2. PREMARIN [Suspect]
  3. PROMETRIUM [Suspect]
  4. ESTRACE [Suspect]
  5. MEDROXYPROGESTERONE ACETATE [Suspect]

REACTIONS (5)
  - ANXIETY [None]
  - BREAST CANCER FEMALE [None]
  - EMOTIONAL DISTRESS [None]
  - INJURY [None]
  - SCAR [None]
